FAERS Safety Report 7938602-8 (Version None)
Quarter: 2011Q4

REPORT INFORMATION
  Report Type: 
  Country: None (occurrence: None)
  Receive Date: 20111123
  Receipt Date: 20100921
  Transmission Date: 20120403
  Serious: Yes (Other)
  Sender: FDA-Public Use
  Company Number: PHHY2010ZM092669

PATIENT

DRUGS (1)
  1. COARTEM [Suspect]
     Indication: MALARIA
     Dosage: MATERNAL DOSE: 20 MG ARTEMETHER AND 120 MG LUMEFANTRINE
     Route: 064

REACTIONS (3)
  - VULVAL DISORDER [None]
  - CONGENITAL NOSE MALFORMATION [None]
  - CONGENITAL HAIR DISORDER [None]
